FAERS Safety Report 24331299 (Version 1)
Quarter: 2024Q3

REPORT INFORMATION
  Report Type: Spontaneous
  Country: US (occurrence: None)
  Receive Date: 20240918
  Receipt Date: 20240918
  Transmission Date: 20241017
  Serious: Yes (Life-Threatening, Other)
  Sender: ASTRAZENECA
  Company Number: 2024A211866

PATIENT

DRUGS (1)
  1. NEXIUM [Suspect]
     Active Substance: ESOMEPRAZOLE MAGNESIUM
     Indication: Gastrooesophageal reflux disease
     Dosage: 2.0MG UNKNOWN
     Route: 048
     Dates: start: 20240701

REACTIONS (7)
  - Choking [Unknown]
  - Screaming [Unknown]
  - Gastrooesophageal reflux disease [Recovering/Resolving]
  - Constipation [Unknown]
  - Weight increased [Unknown]
  - Flatulence [Unknown]
  - Hypophagia [Unknown]
